FAERS Safety Report 24526714 (Version 1)
Quarter: 2024Q4

REPORT INFORMATION
  Report Type: Spontaneous
  Country: US (occurrence: US)
  Receive Date: 20241021
  Receipt Date: 20241021
  Transmission Date: 20250114
  Serious: Yes (Other)
  Sender: JOHNSON AND JOHNSON
  Company Number: US-JNJFOC-20241043194

PATIENT
  Age: 43 Year
  Sex: Male

DRUGS (6)
  1. INVEGA SUSTENNA [Suspect]
     Active Substance: PALIPERIDONE PALMITATE
     Indication: Product used for unknown indication
     Route: 030
  2. INVEGA SUSTENNA [Suspect]
     Active Substance: PALIPERIDONE PALMITATE
  3. INVEGA SUSTENNA [Suspect]
     Active Substance: PALIPERIDONE PALMITATE
  4. FLUPHEN [Concomitant]
     Indication: Product used for unknown indication
  5. FLUPHENAZINE [Concomitant]
     Active Substance: FLUPHENAZINE
  6. INGREZZA [Concomitant]
     Active Substance: VALBENAZINE

REACTIONS (1)
  - Tardive dyskinesia [Unknown]
